FAERS Safety Report 25372306 (Version 1)
Quarter: 2025Q2

REPORT INFORMATION
  Report Type: Report from Study
  Country: CA (occurrence: CA)
  Receive Date: 20250529
  Receipt Date: 20250529
  Transmission Date: 20250716
  Serious: Yes (Other)
  Sender: JOHNSON AND JOHNSON
  Company Number: CA-JNJFOC-20250532501

PATIENT
  Age: 59 Year
  Sex: Female

DRUGS (2)
  1. STELARA [Suspect]
     Active Substance: USTEKINUMAB
     Indication: Crohn^s disease
     Route: 058
     Dates: start: 20230201
  2. STELARA [Suspect]
     Active Substance: USTEKINUMAB
     Route: 058
     Dates: start: 20240808

REACTIONS (2)
  - Tooth abscess [Recovered/Resolved]
  - Off label use [Unknown]
